FAERS Safety Report 25603438 (Version 2)
Quarter: 2025Q3

REPORT INFORMATION
  Report Type: Spontaneous
  Country: US (occurrence: US)
  Receive Date: 20250724
  Receipt Date: 20250804
  Transmission Date: 20251021
  Serious: Yes (Death, Other)
  Sender: ARDELYX
  Company Number: US-ARDELYX-2025ARDX005561

PATIENT
  Age: 59 Year
  Sex: Female

DRUGS (1)
  1. XPHOZAH [Suspect]
     Active Substance: TENAPANOR HYDROCHLORIDE
     Indication: Chronic kidney disease
     Route: 048
     Dates: start: 20240311

REACTIONS (2)
  - Cardiac death [Fatal]
  - Diarrhoea [Unknown]

NARRATIVE: CASE EVENT DATE: 20240426
